FAERS Safety Report 8865518 (Version 1)
Quarter: 2012Q4

REPORT INFORMATION
  Report Type: 
  Country: US (occurrence: US)
  Receive Date: 20121024
  Receipt Date: 20121024
  Transmission Date: 20130627
  Serious: No
  Sender: FDA-Public Use
  Company Number: US-AMGEN-USASP2012003311

PATIENT
  Age: 71 Year
  Sex: Female
  Weight: 59.86 kg

DRUGS (14)
  1. ENBREL [Suspect]
     Indication: PRODUCT USED FOR UNKNOWN INDICATION
     Dosage: 50 mg, qwk
  2. LEVOTHYROXIN [Concomitant]
     Dosage: 25 mug, UNK
  3. BENICAR [Concomitant]
     Dosage: 20 mg, UNK
  4. CRESTOR [Concomitant]
     Dosage: 10 mg, UNK
  5. GLIPIZIDE [Concomitant]
     Dosage: 10 mg, UNK
  6. SINGULAIR [Concomitant]
     Dosage: 10 mg, UNK
  7. METFORMIN [Concomitant]
     Dosage: 500 mg, UNK
  8. LANSOPRAZOLE [Concomitant]
     Dosage: 30 mg, UNK
  9. ESTER C [Concomitant]
     Dosage: 500 mg, UNK
  10. ACIDOPHILUS [Concomitant]
     Dosage: UNK
  11. IRON [Concomitant]
     Dosage: 325 mg, UNK
  12. VITAMIN B12 [Concomitant]
     Dosage: 1000 mg, UNK
  13. ACTONEL [Concomitant]
     Dosage: 35 mg, UNK
  14. VITAMIN C [Concomitant]
     Dosage: 1000 mg, UNK

REACTIONS (3)
  - Pharyngitis [Unknown]
  - Ear infection [Unknown]
  - Rhinitis [Unknown]
